FAERS Safety Report 24097201 (Version 1)
Quarter: 2024Q3

REPORT INFORMATION
  Report Type: Spontaneous
  Country: JP (occurrence: JP)
  Receive Date: 20240716
  Receipt Date: 20240716
  Transmission Date: 20241017
  Serious: Yes (Other)
  Sender: RISING PHARMACEUTICALS
  Company Number: JP-RISINGPHARMA-JP-2024RISLIT00246

PATIENT
  Age: 4 Decade
  Sex: Male

DRUGS (9)
  1. AMANTADINE HYDROCHLORIDE [Suspect]
     Active Substance: AMANTADINE HYDROCHLORIDE
     Indication: Tardive dyskinesia
     Route: 065
     Dates: start: 202208, end: 202303
  2. AMANTADINE HYDROCHLORIDE [Suspect]
     Active Substance: AMANTADINE HYDROCHLORIDE
     Route: 065
     Dates: start: 202303, end: 202304
  3. BREXPIPRAZOLE [Concomitant]
     Active Substance: BREXPIPRAZOLE
     Indication: Tardive dyskinesia
     Route: 065
     Dates: start: 202109, end: 202110
  4. BREXPIPRAZOLE [Concomitant]
     Active Substance: BREXPIPRAZOLE
     Route: 065
     Dates: start: 202110, end: 202302
  5. BREXPIPRAZOLE [Concomitant]
     Active Substance: BREXPIPRAZOLE
     Route: 065
     Dates: start: 202302, end: 202303
  6. VALPROIC ACID [Concomitant]
     Active Substance: VALPROIC ACID
     Indication: Bipolar I disorder
     Route: 065
     Dates: start: 202111, end: 202112
  7. VALPROIC ACID [Concomitant]
     Active Substance: VALPROIC ACID
     Route: 065
     Dates: start: 202112, end: 202201
  8. VALPROIC ACID [Concomitant]
     Active Substance: VALPROIC ACID
     Route: 065
     Dates: start: 202201, end: 202303
  9. VALPROIC ACID [Concomitant]
     Active Substance: VALPROIC ACID
     Route: 065
     Dates: start: 202303

REACTIONS (3)
  - Tardive dyskinesia [Recovering/Resolving]
  - Condition aggravated [Recovering/Resolving]
  - Off label use [Unknown]
